FAERS Safety Report 4642371-7 (Version None)
Quarter: 2005Q2

REPORT INFORMATION
  Report Type: 
  Country: None (occurrence: None)
  Receive Date: 20050422
  Receipt Date: 20050419
  Transmission Date: 20051028
  Serious: Yes (Hospitalization)
  Sender: FDA-Public Use
  Company Number: 133

PATIENT
  Age: 60 Year
  Sex: Male
  Weight: 106 kg

DRUGS (2)
  1. MELPHALAN [Suspect]
     Indication: MULTIPLE MYELOMA
     Dosage: 400MG PER DAY
     Route: 042
     Dates: start: 20050303
  2. THALIDOMIDE [Suspect]
     Indication: MULTIPLE MYELOMA
     Dosage: 200MG PER DAY
     Route: 048
     Dates: start: 20050121, end: 20050124

REACTIONS (3)
  - ANAEMIA [None]
  - COUGH [None]
  - PNEUMONIA [None]
